FAERS Safety Report 11861670 (Version 1)
Quarter: 2015Q4

REPORT INFORMATION
  Report Type: Report from Study
  Country: DE (occurrence: DE)
  Receive Date: 20151222
  Receipt Date: 20151222
  Transmission Date: 20160305
  Serious: Yes (Hospitalization)
  Sender: FDA-Public Use
  Company Number: DE-ABBVIE-15K-062-1520685-00

PATIENT
  Age: 68 Year
  Sex: Male
  Weight: 112 kg

DRUGS (8)
  1. MORPHINE [Concomitant]
     Active Substance: MORPHINE
     Indication: PRODUCT USED FOR UNKNOWN INDICATION
  2. DOXAZOSINE [Concomitant]
     Active Substance: DOXAZOSIN MESYLATE
     Indication: PRODUCT USED FOR UNKNOWN INDICATION
  3. ASPIRIN. [Concomitant]
     Active Substance: ASPIRIN
     Indication: PRODUCT USED FOR UNKNOWN INDICATION
     Dosage: DURING THE LAST TIME
     Dates: end: 201510
  4. PANTOPRAZOLE [Concomitant]
     Active Substance: PANTOPRAZOLE SODIUM
     Indication: PRODUCT USED FOR UNKNOWN INDICATION
     Dosage: PLANNED FOR 2 WEEKS
     Dates: start: 201510
  5. HUMIRA [Suspect]
     Active Substance: ADALIMUMAB
     Indication: PSORIASIS
     Route: 058
     Dates: start: 20130605
  6. FLUPIRTINE [Concomitant]
     Active Substance: FLUPIRTINE
     Indication: PRODUCT USED FOR UNKNOWN INDICATION
  7. ASPIRIN. [Concomitant]
     Active Substance: ASPIRIN
     Dates: start: 201510
  8. LOSARTAN AND HYDROCHLOROTHIAZIDE [Concomitant]
     Active Substance: HYDROCHLOROTHIAZIDE\LOSARTAN POTASSIUM
     Indication: PRODUCT USED FOR UNKNOWN INDICATION
     Dosage: 50/12.5

REACTIONS (21)
  - Spinal osteoarthritis [Unknown]
  - Hepatic cyst [Unknown]
  - Hiatus hernia [Unknown]
  - Nausea [Recovering/Resolving]
  - Hepatic steatosis [Unknown]
  - Chronic gastritis [Recovering/Resolving]
  - Kyphosis [Unknown]
  - Gastrooesophageal reflux disease [Recovering/Resolving]
  - Osteochondrosis [Unknown]
  - Aortic arteriosclerosis [Unknown]
  - Reflux gastritis [Recovering/Resolving]
  - Hypertensive crisis [Recovering/Resolving]
  - Lordosis [Unknown]
  - Chronic obstructive pulmonary disease [Unknown]
  - Wheezing [Unknown]
  - Aortic elongation [Unknown]
  - Dilatation ventricular [Unknown]
  - Scoliosis [Unknown]
  - Renal cyst [Unknown]
  - Abdominal pain upper [Recovering/Resolving]
  - Dyspepsia [Recovering/Resolving]

NARRATIVE: CASE EVENT DATE: 201510
